FAERS Safety Report 13599874 (Version 1)
Quarter: 2017Q2

REPORT INFORMATION
  Report Type: Spontaneous
  Country: AR (occurrence: AR)
  Receive Date: 20170601
  Receipt Date: 20170601
  Transmission Date: 20170830
  Serious: Yes (Other)
  Sender: FDA-Public Use
  Company Number: AR-ASTRAZENECA-2017SE56282

PATIENT
  Age: 62 Year
  Sex: Male

DRUGS (2)
  1. IRESSA [Suspect]
     Active Substance: GEFITINIB
     Indication: LUNG NEOPLASM MALIGNANT
     Route: 048
     Dates: start: 201510, end: 201607
  2. IRESSA [Suspect]
     Active Substance: GEFITINIB
     Indication: LUNG NEOPLASM MALIGNANT
     Route: 048
     Dates: end: 201612

REACTIONS (3)
  - Product substitution issue [Unknown]
  - Limb injury [Not Recovered/Not Resolved]
  - Metastases to bone [Unknown]

NARRATIVE: CASE EVENT DATE: 2015
